FAERS Safety Report 7142625-9 (Version None)
Quarter: 2010Q4

REPORT INFORMATION
  Report Type: 
  Country: None (occurrence: None)
  Receive Date: 20101207
  Receipt Date: 20101201
  Transmission Date: 20110411
  Serious: Yes (Death, Hospitalization)
  Sender: FDA-Public Use
  Company Number: JP-ROCHE-727122

PATIENT
  Sex: Female

DRUGS (5)
  1. XELODA [Suspect]
     Indication: COLON CANCER RECURRENT
     Dosage: 2 WEEKS ADMINISTRATION FOLLOWED BY 1 WEEK REST
     Route: 048
     Dates: start: 20100304, end: 20100612
  2. AVASTIN [Suspect]
     Indication: COLON CANCER RECURRENT
     Route: 041
     Dates: start: 20100304, end: 20100603
  3. ELPLAT [Concomitant]
     Route: 041
     Dates: start: 20100304, end: 20100603
  4. LOXONIN [Concomitant]
     Route: 048
     Dates: end: 20100617
  5. GASTER D [Concomitant]
     Route: 048
     Dates: end: 20100617

REACTIONS (5)
  - DISSEMINATED INTRAVASCULAR COAGULATION [None]
  - ILEAL PERFORATION [None]
  - MULTI-ORGAN FAILURE [None]
  - PLATELET COUNT DECREASED [None]
  - SEPSIS [None]
